FAERS Safety Report 5133813-1 (Version None)
Quarter: 2006Q4

REPORT INFORMATION
  Report Type: 
  Country: None (occurrence: None)
  Receive Date: 20061018
  Receipt Date: 20061005
  Transmission Date: 20070319
  Serious: Yes (Other)
  Sender: FDA-Public Use
  Company Number: 2006124885

PATIENT
  Sex: Female

DRUGS (6)
  1. NEURONTIN [Suspect]
     Indication: NEUROPATHY PERIPHERAL
  2. LEXAPRO [Concomitant]
  3. TRANXENE [Concomitant]
  4. ESTRADERM [Concomitant]
  5. PREVACID [Concomitant]
  6. DILAUDID [Concomitant]

REACTIONS (10)
  - AMNESIA [None]
  - CONDITION AGGRAVATED [None]
  - DEPRESSION [None]
  - DRUG INEFFECTIVE [None]
  - INTERVERTEBRAL DISC PROTRUSION [None]
  - JOINT SWELLING [None]
  - NEPHRITIC SYNDROME [None]
  - NEUROPATHY [None]
  - PNEUMONIA [None]
  - SPEECH DISORDER [None]
